FAERS Safety Report 11926775 (Version 2)
Quarter: 2016Q1

REPORT INFORMATION
  Report Type: Spontaneous
  Country: DE (occurrence: DE)
  Receive Date: 20160119
  Receipt Date: 20160217
  Transmission Date: 20160526
  Serious: Yes (Other)
  Sender: FDA-Public Use
  Company Number: DE-PFIZER INC-2016016555

PATIENT
  Age: 38 Year
  Sex: Female

DRUGS (3)
  1. TREVILOR RETARD [Suspect]
     Active Substance: VENLAFAXINE HYDROCHLORIDE
     Indication: ANXIETY DISORDER
     Dosage: 150 MG, UNK
  2. TREVILOR RETARD [Suspect]
     Active Substance: VENLAFAXINE HYDROCHLORIDE
     Indication: PANIC ATTACK
  3. CEFURAX [Suspect]
     Active Substance: CEFUROXIME AXETIL
     Indication: OTITIS MEDIA
     Dosage: UNK

REACTIONS (2)
  - Otitis media [Unknown]
  - Drug ineffective [Unknown]
